FAERS Safety Report 20289707 (Version 1)
Quarter: 2022Q1

REPORT INFORMATION
  Report Type: Spontaneous
  Country: CA (occurrence: CA)
  Receive Date: 20220104
  Receipt Date: 20220104
  Transmission Date: 20220424
  Serious: Yes (Death, Hospitalization)
  Sender: FDA-Public Use
  Company Number: CA-SAMSUNG BIOEPIS-SB-2021-30679

PATIENT
  Age: 73 Year
  Sex: Female

DRUGS (1)
  1. INFLIXIMAB [Suspect]
     Active Substance: INFLIXIMAB
     Indication: Colitis ulcerative
     Route: 042

REACTIONS (9)
  - Death [Fatal]
  - Aphasia [Fatal]
  - Fatigue [Fatal]
  - Immune system disorder [Fatal]
  - Slow speech [Fatal]
  - Somnolence [Fatal]
  - Swelling [Fatal]
  - Swelling face [Fatal]
  - Viral infection [Fatal]
